FAERS Safety Report 24088306 (Version 1)
Quarter: 2024Q3

REPORT INFORMATION
  Report Type: Spontaneous
  Country: US (occurrence: US)
  Receive Date: 20240715
  Receipt Date: 20240715
  Transmission Date: 20241016
  Serious: No
  Sender: BEIGENE
  Company Number: US-BEIGENE-BGN-2024-009467

PATIENT

DRUGS (1)
  1. BRUKINSA [Suspect]
     Active Substance: ZANUBRUTINIB
     Indication: Non-Hodgkin^s lymphoma
     Dosage: 160 MILLIGRAM, BID
     Route: 048
     Dates: start: 20240129

REACTIONS (10)
  - Vertigo [Not Recovered/Not Resolved]
  - Fall [Not Recovered/Not Resolved]
  - Wound [Not Recovered/Not Resolved]
  - Rib fracture [Not Recovered/Not Resolved]
  - Contusion [Not Recovered/Not Resolved]
  - Dizziness [Not Recovered/Not Resolved]
  - Ear congestion [Not Recovered/Not Resolved]
  - Increased upper airway secretion [Not Recovered/Not Resolved]
  - Balance disorder [Not Recovered/Not Resolved]
  - Nystagmus [Not Recovered/Not Resolved]

NARRATIVE: CASE EVENT DATE: 20240414
